FAERS Safety Report 14611784 (Version 3)
Quarter: 2020Q3

REPORT INFORMATION
  Report Type: Spontaneous
  Country: US (occurrence: US)
  Receive Date: 20180308
  Receipt Date: 20200727
  Transmission Date: 20201102
  Serious: No
  Sender: FDA-Public Use
  Company Number: US-PFIZER INC-2018095782

PATIENT
  Age: 73 Year
  Sex: Female
  Weight: 83.45 kg

DRUGS (3)
  1. SANDOSTATIN [Concomitant]
     Active Substance: OCTREOTIDE ACETATE
     Dosage: ONCE A MONTH
  2. SOMAVERT [Suspect]
     Active Substance: PEGVISOMANT
     Indication: GROWTH HORMONE-PRODUCING PITUITARY TUMOUR
     Dosage: 15 MG, DAILY(INJECTION EVERY DAY)
  3. SOMAVERT [Suspect]
     Active Substance: PEGVISOMANT
     Indication: ACROMEGALY

REACTIONS (1)
  - Injection site bruising [Recovering/Resolving]
